FAERS Safety Report 7980921-3 (Version None)
Quarter: 2011Q4

REPORT INFORMATION
  Report Type: 
  Country: None (occurrence: None)
  Receive Date: 20111215
  Receipt Date: 20111207
  Transmission Date: 20120403
  Serious: Yes (Other)
  Sender: FDA-Public Use
  Company Number: US-BIOGENIDEC-2011BI043685

PATIENT
  Age: 23 Year
  Sex: Male

DRUGS (2)
  1. AMPYRA [Concomitant]
  2. TYSABRI [Suspect]
     Indication: MULTIPLE SCLEROSIS
     Route: 042
     Dates: start: 20111005

REACTIONS (4)
  - APHASIA [None]
  - HEADACHE [None]
  - VISUAL IMPAIRMENT [None]
  - CONVULSION [None]
